FAERS Safety Report 9729039 (Version 2)
Quarter: 2014Q1

REPORT INFORMATION
  Report Type: Spontaneous
  Country: JP (occurrence: JP)
  Receive Date: 20131204
  Receipt Date: 20140313
  Transmission Date: 20141002
  Serious: Yes (Hospitalization, Other)
  Sender: FDA-Public Use
  Company Number: JP-BAYER-2013-145913

PATIENT
  Age: 82 Year
  Sex: Male
  Weight: 42 kg

DRUGS (6)
  1. NEXAVAR [Suspect]
     Indication: HEPATOCELLULAR CARCINOMA
     Dosage: 200 MG, BID
     Route: 048
     Dates: start: 20130902, end: 20131007
  2. URIEF [Concomitant]
     Dosage: DAILY DOSE 8 MG
     Route: 048
     Dates: start: 20130816
  3. DEPAS [Concomitant]
     Dosage: DAILY DOSE 1 MG
     Route: 048
  4. LENDORMIN DAINIPPO [Concomitant]
     Dosage: DAILY DOSE .25 MG
     Route: 048
  5. CALONAL [Concomitant]
     Indication: PYREXIA
     Dosage: DAILY DOSE 300 MG
     Route: 048
  6. SENNOSIDE [Concomitant]
     Indication: CONSTIPATION
     Dosage: DAILY DOSE 12 MG
     Route: 048

REACTIONS (1)
  - Epilepsy [Recovering/Resolving]
